FAERS Safety Report 10007303 (Version 1)
Quarter: 2014Q1

REPORT INFORMATION
  Report Type: Spontaneous
  Country: DK (occurrence: FR)
  Receive Date: 20140313
  Receipt Date: 20140313
  Transmission Date: 20141002
  Serious: Yes (Hospitalization)
  Sender: FDA-Public Use
  Company Number: FR-FRI-1000060525

PATIENT
  Age: 89 Year
  Sex: Female

DRUGS (8)
  1. ESCITALOPRAM [Suspect]
     Indication: DEPRESSION
     Dosage: 15 MG
     Route: 048
  2. ZOLOFT [Suspect]
     Indication: DEPRESSION
     Dosage: 50 MG
     Route: 048
     Dates: end: 20131109
  3. ALPRAZOLAM [Concomitant]
  4. PROCORALAN [Concomitant]
  5. TAHOR [Concomitant]
  6. DOLIPRANE [Concomitant]
  7. FORLAX [Concomitant]
  8. EDUCTYL [Concomitant]

REACTIONS (2)
  - Partial seizures with secondary generalisation [Recovered/Resolved]
  - Off label use [Recovered/Resolved]
